FAERS Safety Report 15283576 (Version 1)
Quarter: 2018Q3

REPORT INFORMATION
  Report Type: Spontaneous
  Country: US (occurrence: US)
  Receive Date: 20180731
  Receipt Date: 20180731
  Transmission Date: 20181010
  Serious: No
  Sender: FDA-Public Use
  Company Number: None

PATIENT
  Age: 60 Year
  Sex: Female
  Weight: 49.5 kg

DRUGS (2)
  1. TREXALL [Suspect]
     Active Substance: METHOTREXATE SODIUM
     Indication: MYELOID LEUKAEMIA
     Route: 048
     Dates: start: 20180706
  2. TREXALL [Concomitant]
     Active Substance: METHOTREXATE SODIUM
     Dates: start: 20180706

REACTIONS (1)
  - Dry mouth [None]

NARRATIVE: CASE EVENT DATE: 20180731
